FAERS Safety Report 5960781-2 (Version None)
Quarter: 2008Q4

REPORT INFORMATION
  Report Type: 
  Country: None (occurrence: None)
  Receive Date: 20081120
  Receipt Date: 20081117
  Transmission Date: 20090506
  Serious: Yes (Other)
  Sender: FDA-Public Use
  Company Number: FR-PFIZER INC-2008097009

PATIENT
  Age: 63 Year
  Sex: Male

DRUGS (1)
  1. TAHOR [Suspect]
     Indication: CEREBROVASCULAR ACCIDENT
     Dosage: DAILY DOSE:80MG
     Dates: start: 20080101

REACTIONS (2)
  - GASTROINTESTINAL DISORDER [None]
  - LIPASE INCREASED [None]
